FAERS Safety Report 20324236 (Version 1)
Quarter: 2022Q1

REPORT INFORMATION
  Report Type: Spontaneous
  Country: IE (occurrence: IE)
  Receive Date: 20220111
  Receipt Date: 20220111
  Transmission Date: 20220423
  Serious: Yes (Hospitalization, Other)
  Sender: FDA-Public Use
  Company Number: IE-Basilea Medical Ltd.-IE-BAS-21-00940

PATIENT
  Age: 28 Year
  Sex: Male

DRUGS (3)
  1. MYCOPHENOLATE MOFETIL [Suspect]
     Active Substance: MYCOPHENOLATE MOFETIL
     Indication: Lupus nephritis
     Dosage: 1 GRAM, QD (ONE GRAM TWICE DAILY)
  2. ISAVUCONAZONIUM SULFATE [Suspect]
     Active Substance: ISAVUCONAZONIUM SULFATE
     Indication: Cutaneous mucormycosis
     Dosage: 200 MILLIGRAM, QD
     Route: 048
  3. ISAVUCONAZONIUM SULFATE [Suspect]
     Active Substance: ISAVUCONAZONIUM SULFATE
     Indication: Cutaneous mucormycosis
     Dosage: 200 MILLIGRAM, Q8H
     Route: 042

REACTIONS (7)
  - Hypogammaglobulinaemia [Unknown]
  - Anaemia [Unknown]
  - Pancytopenia [Unknown]
  - Opportunistic infection [Unknown]
  - Chronic kidney disease [Unknown]
  - Cutaneous mucormycosis [Unknown]
  - Off label use [Unknown]
